FAERS Safety Report 16559528 (Version 1)
Quarter: 2019Q3

REPORT INFORMATION
  Report Type: Spontaneous
  Country: GB (occurrence: GB)
  Receive Date: 20190711
  Receipt Date: 20190711
  Transmission Date: 20191004
  Serious: Yes (Hospitalization)
  Sender: FDA-Public Use
  Company Number: GB-ACCORD-137862

PATIENT
  Age: 71 Year
  Sex: Male
  Weight: 64.3 kg

DRUGS (15)
  1. LERCANIDIPINE [Concomitant]
     Active Substance: LERCANIDIPINE
  2. EKLIRA GENUAIR [Concomitant]
     Active Substance: ACLIDINIUM BROMIDE
  3. LANSOPRAZOLE. [Concomitant]
     Active Substance: LANSOPRAZOLE
     Route: 048
  4. TERBUTALINE [Concomitant]
     Active Substance: TERBUTALINE
  5. PERINDOPRIL [Concomitant]
     Active Substance: PERINDOPRIL
  6. THIAMINE. [Concomitant]
     Active Substance: THIAMINE
  7. SIMVASTATIN. [Concomitant]
     Active Substance: SIMVASTATIN
  8. CALCIUM PANTOTHENATE/NICOTINAMIDE/PYRIDOXINE HYDROCHLORIDE/RIBOFLAVIN/THIAMINE HYDROCHLORIDE [Concomitant]
  9. ACETYLSALICYLIC ACID [Concomitant]
     Active Substance: ASPIRIN
  10. SERTRALINE [Suspect]
     Active Substance: SERTRALINE HYDROCHLORIDE
     Indication: ANXIETY
     Route: 048
     Dates: start: 20190606, end: 20190609
  11. CARBOCISTEINE/CARBOCISTEINE LYSINE/CARBOCISTEINE SODIUM [Concomitant]
  12. CARVEDILOL/CARVEDILOL HYDROCHLODRIDE [Concomitant]
  13. ISOSORBIDE. [Concomitant]
     Active Substance: ISOSORBIDE
  14. FOSTAIR [Concomitant]
     Active Substance: BECLOMETHASONE\FORMOTEROL
  15. GLYCERYL TRINITRATE [Concomitant]
     Active Substance: NITROGLYCERIN

REACTIONS (7)
  - Clumsiness [Unknown]
  - Inappropriate antidiuretic hormone secretion [Recovering/Resolving]
  - Malaise [Unknown]
  - Blood magnesium decreased [Unknown]
  - Dizziness [Unknown]
  - Hypophagia [Unknown]
  - Blood sodium decreased [Recovered/Resolved]

NARRATIVE: CASE EVENT DATE: 20190609
